APPROVED DRUG PRODUCT: METHENAMINE HIPPURATE
Active Ingredient: METHENAMINE HIPPURATE
Strength: 1GM
Dosage Form/Route: TABLET;ORAL
Application: A212172 | Product #001 | TE Code: AB
Applicant: MICRO LABS LTD
Approved: Aug 1, 2019 | RLD: No | RS: No | Type: RX